FAERS Safety Report 6180862-0 (Version None)
Quarter: 2009Q2

REPORT INFORMATION
  Report Type: 
  Country: None (occurrence: None)
  Receive Date: 20090504
  Receipt Date: 20090504
  Transmission Date: 20091009
  Serious: Yes (Other)
  Sender: FDA-Public Use
  Company Number: None

PATIENT
  Age: 58 Year
  Sex: Female
  Weight: 77.1115 kg

DRUGS (1)
  1. COPAXONE [Suspect]
     Indication: MULTIPLE SCLEROSIS
     Dosage: 20MG DIALY SQ
     Dates: start: 20040616, end: 20090406

REACTIONS (13)
  - ABDOMINAL DISTENSION [None]
  - ABDOMINAL INFECTION [None]
  - ABDOMINAL PAIN UPPER [None]
  - BACK PAIN [None]
  - CONTUSION [None]
  - DRUG EFFECT DECREASED [None]
  - ERYTHEMA [None]
  - IMPAIRED HEALING [None]
  - INFLAMMATION [None]
  - MUSCULAR WEAKNESS [None]
  - PYREXIA [None]
  - SCAB [None]
  - TREMOR [None]
